FAERS Safety Report 14988878 (Version 1)
Quarter: 2018Q2

REPORT INFORMATION
  Report Type: Spontaneous
  Country: US (occurrence: US)
  Receive Date: 20180608
  Receipt Date: 20180608
  Transmission Date: 20180711
  Serious: No
  Sender: FDA-Public Use
  Company Number: US-LEO PHARMA-309257

PATIENT
  Sex: Male

DRUGS (3)
  1. PICATO [Suspect]
     Active Substance: INGENOL MEBUTATE
     Indication: ACTINIC KERATOSIS
     Route: 061
     Dates: start: 20180529, end: 20180529
  2. LIQUID NITROGEN [Concomitant]
     Active Substance: NITROGEN
     Indication: ACTINIC KERATOSIS
  3. PLAVIX [Concomitant]
     Active Substance: CLOPIDOGREL BISULFATE
     Indication: PRODUCT USED FOR UNKNOWN INDICATION

REACTIONS (4)
  - Application site haemorrhage [Recovered/Resolved]
  - Application site erosion [Not Recovered/Not Resolved]
  - Incorrect drug administration duration [Unknown]
  - Application site pustules [Not Recovered/Not Resolved]

NARRATIVE: CASE EVENT DATE: 20180530
